FAERS Safety Report 14650896 (Version 4)
Quarter: 2018Q3

REPORT INFORMATION
  Report Type: Spontaneous
  Country: ES (occurrence: ES)
  Receive Date: 20180316
  Receipt Date: 20180727
  Transmission Date: 20181010
  Serious: Yes (Other)
  Sender: FDA-Public Use
  Company Number: ES-TEVA-2018-ES-868207

PATIENT
  Age: 92 Year
  Sex: Female

DRUGS (9)
  1. AMBROXOL (453A) [Concomitant]
     Dosage: 15 MG EVERY 8 HOURS
     Route: 065
     Dates: start: 20170125, end: 20170217
  2. LORAZEPAM (1864A) [Concomitant]
     Active Substance: LORAZEPAM
     Route: 065
     Dates: start: 20170125, end: 20170217
  3. ACENOCUMAROL [Interacting]
     Active Substance: ACENOCOUMAROL
     Indication: ATRIAL FIBRILLATION
     Dosage: 0.25 MG EVERY 24 HOURS WITH SUBSEQUENT INCREASE TO 0.5 MG EVERY 24 HOURS ON 01/26/20172017
     Route: 048
     Dates: start: 20040917, end: 20170927
  4. DIGOXINA (770A) [Concomitant]
     Active Substance: DIGOXIN
     Dosage: 0,125 MG EVERY 24 HOURS
     Route: 065
     Dates: start: 20170126, end: 20170131
  5. PARACETAMOL (12A) [Concomitant]
     Active Substance: ACETAMINOPHEN
     Dosage: 1 GR EVERY 8 HOURS
     Route: 065
     Dates: start: 20150125, end: 20170218
  6. AMOXICILINA/ACIDO CLAVULANICO [Suspect]
     Active Substance: AMOXICILLIN\CLAVULANATE POTASSIUM
     Indication: PNEUMONIA
     Dosage: 1 GR EVERY 8 HOURS WITH IRREGULAR DOSE CHANGES TO 875 MG EVERY 8 HOURS
     Route: 042
     Dates: start: 20170125, end: 20170208
  7. PANTOPRAZOL (7275A) [Concomitant]
     Active Substance: PANTOPRAZOLE
     Dosage: 20 MG EVERY 24 HOURS
     Dates: start: 20170126, end: 20170216
  8. LORAZEPAM (1864A) [Concomitant]
     Active Substance: LORAZEPAM
     Dosage: 1 MG EVERY 24 HOURS
     Dates: start: 20170126, end: 20170217
  9. PANTOPRAZOL (7275A) [Concomitant]
     Active Substance: PANTOPRAZOLE
     Dosage: 40 MG EVERY 24 HOURS WITH POSTERIOR DOSE REDUCTION AT 20 MG EVERY 24 HOURS ON 26/01/2017
     Route: 065
     Dates: start: 20170125, end: 20170216

REACTIONS (2)
  - Hypocoagulable state [Recovered/Resolved]
  - Drug interaction [Unknown]

NARRATIVE: CASE EVENT DATE: 20170127
